FAERS Safety Report 9232097 (Version 2)
Quarter: 2013Q2

REPORT INFORMATION
  Report Type: Spontaneous
  Country: US (occurrence: US)
  Receive Date: 20130415
  Receipt Date: 20130530
  Transmission Date: 20140414
  Serious: Yes (Other)
  Sender: FDA-Public Use
  Company Number: US-PFIZER INC-2013114647

PATIENT
  Age: 28 Year
  Sex: Male

DRUGS (3)
  1. NEURONTIN [Suspect]
     Indication: PAIN
     Dosage: 800 MG, 3X/DAY
     Route: 048
     Dates: start: 2007
  2. TRAZODONE [Suspect]
     Dosage: 100 MG, QHS
     Route: 048
     Dates: start: 20090605
  3. CELEXA [Suspect]
     Indication: DEPRESSION
     Dosage: 20 MG, QD
     Route: 048
     Dates: start: 20090605

REACTIONS (6)
  - Drug hypersensitivity [Unknown]
  - Swelling [Recovered/Resolved]
  - Swelling face [Unknown]
  - Oedema peripheral [Unknown]
  - Abdominal distension [Unknown]
  - Abdominal pain [Unknown]
